FAERS Safety Report 20562883 (Version 1)
Quarter: 2022Q1

REPORT INFORMATION
  Report Type: Report from Study
  Country: UY (occurrence: UY)
  Receive Date: 20220307
  Receipt Date: 20220307
  Transmission Date: 20220423
  Serious: Yes (Other)
  Sender: FDA-Public Use
  Company Number: UY-ABBVIE-20K-168-3278240-00

PATIENT
  Age: 13 Year
  Sex: Female

DRUGS (1)
  1. HUMIRA [Suspect]
     Active Substance: ADALIMUMAB
     Indication: Juvenile idiopathic arthritis
     Route: 058
     Dates: start: 20190404

REACTIONS (3)
  - Glaucoma [Recovering/Resolving]
  - Eye operation [Unknown]
  - Hypertension [Unknown]

NARRATIVE: CASE EVENT DATE: 20200203
